FAERS Safety Report 5171026-8 (Version None)
Quarter: 2006Q4

REPORT INFORMATION
  Report Type: 
  Country: None (occurrence: None)
  Receive Date: 20061213
  Receipt Date: 20061201
  Transmission Date: 20070319
  Serious: Yes (Hospitalization)
  Sender: FDA-Public Use
  Company Number: 2006SE06477

PATIENT
  Age: 65 Year
  Sex: Male

DRUGS (4)
  1. BLOPRESS [Suspect]
     Route: 048
  2. (DIURETICS) [Suspect]
     Route: 065
  3. AMLODIPINE BESYLATE [Concomitant]
     Route: 048
  4. INDAPAMIDE [Concomitant]
     Route: 048

REACTIONS (9)
  - ANOREXIA [None]
  - ANXIETY [None]
  - BLOOD PRESSURE SYSTOLIC INCREASED [None]
  - DEATH OF CHILD [None]
  - DEPRESSED LEVEL OF CONSCIOUSNESS [None]
  - HYPONATRAEMIA [None]
  - RENIN INCREASED [None]
  - THIRST [None]
  - VOMITING [None]
